FAERS Safety Report 14815573 (Version 2)
Quarter: 2018Q2

REPORT INFORMATION
  Report Type: Report from Study
  Country: DE (occurrence: DE)
  Receive Date: 20180426
  Receipt Date: 20180514
  Transmission Date: 20180711
  Serious: Yes (Hospitalization)
  Sender: FDA-Public Use
  Company Number: DE-SA-199813631HPD

PATIENT
  Age: 76 Year
  Sex: Female
  Weight: 66 kg

DRUGS (8)
  1. NOVODIGAL MITE [Concomitant]
     Indication: CARDIAC FAILURE
  2. EUGLUCON N [Suspect]
     Active Substance: GLYBURIDE
     Indication: DIABETES MELLITUS
     Dosage: DOSE UNIT: 3.5 MG
     Route: 048
     Dates: end: 19931201
  3. ISMO [Concomitant]
     Active Substance: ISOSORBIDE MONONITRATE
     Indication: CORONARY ARTERY DISEASE
     Dosage: DAILY DOSE: 40 MG
     Route: 065
  4. DILZEM [Suspect]
     Active Substance: DILTIAZEM
     Indication: CORONARY ARTERY DISEASE
     Route: 065
     Dates: start: 19931111, end: 19931201
  5. POMALIDOMIDE [Suspect]
     Active Substance: POMALIDOMIDE
     Route: 048
     Dates: start: 20150101
  6. ASPIRIN. [Suspect]
     Active Substance: ASPIRIN
     Indication: CORONARY ARTERY DISEASE
     Route: 065
     Dates: start: 19931111, end: 19931201
  7. LOPIRIN (CAPTOPRIL) [Suspect]
     Active Substance: CAPTOPRIL
     Indication: CARDIAC FAILURE
     Route: 048
     Dates: start: 19931116, end: 19931201
  8. POMALIDOMIDE [Suspect]
     Active Substance: POMALIDOMIDE
     Route: 048
     Dates: start: 20141230

REACTIONS (7)
  - Tension [Recovering/Resolving]
  - Skin burning sensation [Recovering/Resolving]
  - Mouth ulceration [Recovering/Resolving]
  - Skin disorder [Recovering/Resolving]
  - Stevens-Johnson syndrome [Recovering/Resolving]
  - Erythema [Recovering/Resolving]
  - Rash [Recovering/Resolving]

NARRATIVE: CASE EVENT DATE: 19931128
